FAERS Safety Report 5148885-8 (Version None)
Quarter: 2006Q4

REPORT INFORMATION
  Report Type: 
  Country: None (occurrence: None)
  Receive Date: 20061113
  Receipt Date: 20061102
  Transmission Date: 20070319
  Serious: Yes (Other)
  Sender: FDA-Public Use
  Company Number: DE-JNJFOC-20061100658

PATIENT
  Age: 3 Decade

DRUGS (4)
  1. INFLIXIMAB [Suspect]
     Route: 042
  2. INFLIXIMAB [Suspect]
     Indication: ANKYLOSING SPONDYLITIS
     Route: 042
  3. PREDNISOLONE [Concomitant]
     Route: 065
  4. PREDNISOLONE [Concomitant]
     Indication: PREMEDICATION
     Route: 065

REACTIONS (12)
  - BRONCHOSPASM [None]
  - CARDIOVASCULAR DISORDER [None]
  - CYANOSIS [None]
  - DRUG HYPERSENSITIVITY [None]
  - DYSPNOEA [None]
  - FLUSHING [None]
  - HEADACHE [None]
  - HYPOTENSION [None]
  - INFUSION RELATED REACTION [None]
  - MYALGIA [None]
  - NAUSEA [None]
  - PALPITATIONS [None]
